FAERS Safety Report 17257770 (Version 1)
Quarter: 2020Q1

REPORT INFORMATION
  Report Type: Report from Study
  Country: BR (occurrence: BR)
  Receive Date: 20200110
  Receipt Date: 20200110
  Transmission Date: 20200409
  Serious: Yes (Other)
  Sender: FDA-Public Use
  Company Number: BR-GLAXOSMITHKLINE-BR2015GSK049705

PATIENT
  Sex: Female
  Weight: 65 kg

DRUGS (7)
  1. PREDNISOLONE. [Concomitant]
     Active Substance: PREDNISOLONE
     Indication: PRODUCT USED FOR UNKNOWN INDICATION
     Dosage: UNK
  2. PREDNISONE. [Concomitant]
     Active Substance: PREDNISONE
     Indication: PRODUCT USED FOR UNKNOWN INDICATION
     Dosage: 5 MG, QD
  3. FLUOXETINE [Concomitant]
     Active Substance: FLUOXETINE HYDROCHLORIDE
     Indication: PRODUCT USED FOR UNKNOWN INDICATION
     Dosage: 20 MG
  4. HYDROXYCHLOROQUINE [Concomitant]
     Active Substance: HYDROXYCHLOROQUINE
     Indication: PRODUCT USED FOR UNKNOWN INDICATION
     Dosage: 400 MG
  5. AMITRIPTYLINE [Concomitant]
     Active Substance: AMITRIPTYLINE
     Indication: PRODUCT USED FOR UNKNOWN INDICATION
     Dosage: 25 MG
  6. BELIMUMAB [Suspect]
     Active Substance: BELIMUMAB
     Indication: SYSTEMIC LUPUS ERYTHEMATOSUS
     Dosage: UNK
     Route: 042
     Dates: start: 20141230
  7. AZATHIOPRINE. [Concomitant]
     Active Substance: AZATHIOPRINE
     Indication: PRODUCT USED FOR UNKNOWN INDICATION
     Dosage: 50 MG, BID

REACTIONS (18)
  - Circumstance or information capable of leading to medication error [Recovered/Resolved]
  - Pain [Recovering/Resolving]
  - Laboratory test abnormal [Unknown]
  - Pain in extremity [Unknown]
  - Swelling [Unknown]
  - Diarrhoea [Unknown]
  - Joint stiffness [Recovering/Resolving]
  - Nausea [Unknown]
  - Vomiting [Unknown]
  - Musculoskeletal pain [Unknown]
  - Headache [Unknown]
  - Movement disorder [Unknown]
  - Product dose omission [Not Recovered/Not Resolved]
  - Condition aggravated [Unknown]
  - Overdose [Unknown]
  - Product availability issue [Unknown]
  - Polyarthritis [Unknown]
  - Inappropriate schedule of product administration [Unknown]
